FAERS Safety Report 6527015-1 (Version None)
Quarter: 2009Q4

REPORT INFORMATION
  Report Type: 
  Country: None (occurrence: None)
  Receive Date: 20091229
  Receipt Date: 20091216
  Transmission Date: 20100525
  Serious: Yes (Other)
  Sender: FDA-Public Use
  Company Number: 003386

PATIENT
  Sex: Male

DRUGS (1)
  1. KEPPRA [Suspect]

REACTIONS (1)
  - LEUKOPENIA [None]
